FAERS Safety Report 5079528-X (Version None)
Quarter: 2006Q3

REPORT INFORMATION
  Report Type: 
  Country: None (occurrence: None)
  Receive Date: 20060814
  Receipt Date: 20060222
  Transmission Date: 20061208
  Serious: No
  Sender: FDA-Public Use
  Company Number: US-BRISTOL-MYERS SQUIBB COMPANY-13292701

PATIENT
  Age: 57 Year
  Sex: Female
  Weight: 118 kg

DRUGS (6)
  1. GLUCOVANCE [Suspect]
     Indication: DIABETES MELLITUS MANAGEMENT
     Route: 048
  2. NORVASC [Concomitant]
  3. ACTRON [Concomitant]
  4. AVANDIA [Concomitant]
  5. INSULIN [Concomitant]
  6. CLONIDINE [Concomitant]

REACTIONS (2)
  - BLOOD GLUCOSE DECREASED [None]
  - WRONG DRUG ADMINISTERED [None]
